FAERS Safety Report 4705892-4 (Version None)
Quarter: 2005Q2

REPORT INFORMATION
  Report Type: 
  Country: None (occurrence: None)
  Receive Date: 20050629
  Receipt Date: 20050617
  Transmission Date: 20051028
  Serious: Yes (Other)
  Sender: FDA-Public Use
  Company Number: 2005092140

PATIENT
  Age: 43 Year
  Sex: Male

DRUGS (8)
  1. GABAPENTIN [Suspect]
     Indication: RESTLESS LEGS SYNDROME
     Dosage: 100 MG (100 MG, 1 IN 1 D)
     Dates: start: 20030604
  2. AMLODIPINE [Concomitant]
  3. ATORVASTATIN CALCIUM [Concomitant]
  4. ROCALTROL [Concomitant]
  5. MULTIVITAMIN [Concomitant]
  6. ZOPICLONE (ZOPICLONE) [Concomitant]
  7. ERYTHROPOIETIN (ERYTHROPOIETIN) [Concomitant]
  8. IRON SUCROSE (SACCHARATED IRON OXIDE) [Concomitant]

REACTIONS (5)
  - BLOOD CREATINE PHOSPHOKINASE INCREASED [None]
  - BLOOD CREATININE INCREASED [None]
  - EYE DISORDER [None]
  - HYPOAESTHESIA ORAL [None]
  - MYOPATHY [None]
